FAERS Safety Report 4805761-5 (Version None)
Quarter: 2005Q4

REPORT INFORMATION
  Report Type: 
  Country: None (occurrence: None)
  Receive Date: 20051018
  Receipt Date: 20051005
  Transmission Date: 20060501
  Serious: Yes (Hospitalization, Other)
  Sender: FDA-Public Use
  Company Number: US-2005-006493

PATIENT
  Age: 50 Year
  Sex: Male
  Weight: 76.2 kg

DRUGS (7)
  1. BETASERON (INTERFERON BETA - 1B), 250 UG [Suspect]
     Indication: SECONDARY PROGRESSIVE MULTIPLE SCLEROSIS
     Dosage: 8 MIU, EVERY 2DM SUBCUTANOUS
     Route: 058
     Dates: start: 20020419
  2. NOVANTRONE [Suspect]
     Indication: SECONDARY PROGRESSIVE MULTIPLE SCLEROSIS
     Dosage: RECEIVED A TOTAL OF 8 DOSES
     Dates: start: 20030701, end: 20050401
  3. COLACE (DOCUSATE SODIUM) [Concomitant]
  4. ZANTAC [Concomitant]
  5. BACLOFEN [Concomitant]
  6. KLONOPIN [Concomitant]
  7. NEURONTIN [Concomitant]

REACTIONS (11)
  - AFFECTIVE DISORDER [None]
  - ANXIETY [None]
  - CONDITION AGGRAVATED [None]
  - ESCHERICHIA URINARY TRACT INFECTION [None]
  - HYPOKALAEMIA [None]
  - HYPOPHOSPHATAEMIA [None]
  - MULTIPLE SCLEROSIS RELAPSE [None]
  - NEUTROPENIA [None]
  - OPTIC NEURITIS [None]
  - SUICIDAL IDEATION [None]
  - THROMBOCYTOPENIA [None]
